FAERS Safety Report 23285383 (Version 1)
Quarter: 2023Q4

REPORT INFORMATION
  Report Type: Spontaneous
  Country: US (occurrence: US)
  Receive Date: 20231211
  Receipt Date: 20231211
  Transmission Date: 20240110
  Serious: No
  Sender: FDA-Public Use
  Company Number: US-GLAXOSMITHKLINE-USCH2023058449

PATIENT

DRUGS (4)
  1. ADVIL LIQUI-GELS [Suspect]
     Active Substance: IBUPROFEN
     Indication: Headache
     Dosage: UNK
  2. ADVIL LIQUI-GELS [Suspect]
     Active Substance: IBUPROFEN
     Indication: Dysmenorrhoea
  3. ADVIL LIQUI-GELS [Suspect]
     Active Substance: IBUPROFEN
     Indication: Arthralgia
  4. ADVIL LIQUI-GELS [Suspect]
     Active Substance: IBUPROFEN
     Indication: Myalgia

REACTIONS (2)
  - Drug effective for unapproved indication [Unknown]
  - Product use in unapproved indication [Unknown]
